FAERS Safety Report 15286015 (Version 1)
Quarter: 2018Q3

REPORT INFORMATION
  Report Type: Spontaneous
  Country: BR (occurrence: BR)
  Receive Date: 20180816
  Receipt Date: 20180816
  Transmission Date: 20181010
  Serious: No
  Sender: FDA-Public Use
  Company Number: BR-ELI_LILLY_AND_COMPANY-BR201806013442

PATIENT
  Sex: Male

DRUGS (5)
  1. BETASERC                           /00141801/ [Concomitant]
     Active Substance: BETAHISTINE
     Indication: DIZZINESS
     Dosage: 48 MG, DAILY
     Dates: start: 2007
  2. AAS [Concomitant]
     Active Substance: ASPIRIN
     Indication: CEREBROVASCULAR ACCIDENT
     Dosage: UNK, DAILY
  3. SIMVASTATIN. [Concomitant]
     Active Substance: SIMVASTATIN
     Indication: BLOOD CHOLESTEROL
     Dosage: 20 MG, EACH EVENING
  4. BROMAZEPAM [Concomitant]
     Active Substance: BROMAZEPAM
     Indication: PROPHYLAXIS
     Dosage: UNK, PRN
  5. TADALAFIL [Suspect]
     Active Substance: TADALAFIL
     Indication: BENIGN PROSTATIC HYPERPLASIA
     Dosage: UNK, UNKNOWN
     Route: 065

REACTIONS (3)
  - Dizziness [Recovered/Resolved]
  - Nausea [Recovered/Resolved]
  - Eye irritation [Recovered/Resolved]
